FAERS Safety Report 5825217-0 (Version None)
Quarter: 2008Q3

REPORT INFORMATION
  Report Type: 
  Country: None (occurrence: None)
  Receive Date: 20080729
  Receipt Date: 20080722
  Transmission Date: 20090109
  Serious: Yes (Other)
  Sender: FDA-Public Use
  Company Number: PHEH2005US11113

PATIENT
  Sex: Female
  Weight: 123.81 kg

DRUGS (19)
  1. ESTRADERM [Suspect]
     Indication: MENOPAUSAL SYMPTOMS
     Dosage: 0.05 MG, UNK
     Route: 061
     Dates: start: 19940101, end: 19950101
  2. PREMARIN [Suspect]
     Indication: MENOPAUSAL SYMPTOMS
     Dosage: 0.625 MG, DAYS 1-25
     Route: 048
     Dates: start: 19940101, end: 19990101
  3. PREMPRO [Suspect]
     Indication: MENOPAUSAL SYMPTOMS
     Dosage: 2.5 MG, DAYS 16-25
     Dates: start: 19970101, end: 20020901
  4. PROVERA [Suspect]
     Indication: MENOPAUSAL SYMPTOMS
     Dosage: 2.5MG DAYS 16-25
     Dates: start: 19940101, end: 19980101
  5. MPA [Suspect]
     Indication: MENOPAUSAL SYMPTOMS
     Dates: start: 19940101, end: 20020901
  6. COZAAR [Suspect]
     Indication: HYPERTENSION
     Dosage: 100 MG, QD
     Route: 048
     Dates: start: 20000101, end: 20010101
  7. FENFLURAMINE W/PHENTERMINE [Concomitant]
     Dates: start: 19960101, end: 19970101
  8. PRINIVIL [Concomitant]
     Indication: HYPERTENSION
     Dosage: 10 MG, QD
     Route: 048
     Dates: start: 19940101, end: 20000101
  9. LISINOPRIL [Concomitant]
     Indication: HYPERTENSION
     Dosage: UNK MG, QD
     Route: 048
     Dates: start: 20020101
  10. TOPROL-XL [Concomitant]
     Indication: HYPERTENSION
     Dosage: UNK
     Dates: start: 20020101, end: 20020101
  11. REDUX [Concomitant]
     Indication: WEIGHT DECREASED
     Dosage: UNK TID
     Dates: start: 19960101, end: 19970101
  12. LOVASTATIN [Concomitant]
     Indication: BLOOD CHOLESTEROL INCREASED
     Dosage: UNK
     Dates: start: 19990101
  13. LIPITOR [Concomitant]
     Indication: BLOOD CHOLESTEROL INCREASED
     Dosage: 10 MG, QD
  14. HYZAAR [Concomitant]
     Indication: HYPERTENSION
     Dosage: 12.5 MG, UNK
     Route: 048
     Dates: start: 20000101, end: 20020101
  15. ALPRAZOLAM [Concomitant]
     Indication: ANXIETY
     Dates: start: 20020101
  16. MEPROBAMATE [Concomitant]
     Dosage: 200MG QD
  17. HYDROCHLOROTHIAZIDE [Concomitant]
     Dosage: 25MG QD
  18. FUROSEMIDE [Concomitant]
     Indication: OEDEMA
     Dosage: 40MG BID
  19. VIOXX [Concomitant]
     Dosage: 25MG QD

REACTIONS (16)
  - ANHEDONIA [None]
  - ANXIETY [None]
  - BREAST CANCER [None]
  - BREAST MASS [None]
  - CHEMOTHERAPY [None]
  - DEPRESSION [None]
  - HEART VALVE INCOMPETENCE [None]
  - HYPERGLYCAEMIA [None]
  - LYMPH NODE CANCER METASTATIC [None]
  - MALIGNANT BREAST LUMP REMOVAL [None]
  - MAMMOGRAM ABNORMAL [None]
  - MODIFIED RADICAL MASTECTOMY [None]
  - OSTEOARTHRITIS [None]
  - PAIN [None]
  - SINUS TACHYCARDIA [None]
  - TRICUSPID VALVE INCOMPETENCE [None]
